FAERS Safety Report 15939540 (Version 1)
Quarter: 2019Q1

REPORT INFORMATION
  Report Type: Spontaneous
  Country: US (occurrence: US)
  Receive Date: 20190208
  Receipt Date: 20190208
  Transmission Date: 20190417
  Serious: Yes (Hospitalization, Other)
  Sender: FDA-Public Use
  Company Number: US-OTSUKA-2018_024645

PATIENT
  Sex: Male

DRUGS (5)
  1. ABILIFY [Suspect]
     Active Substance: ARIPIPRAZOLE
     Indication: ATTENTION DEFICIT/HYPERACTIVITY DISORDER
  2. ABILIFY [Suspect]
     Active Substance: ARIPIPRAZOLE
     Indication: BIPOLAR DISORDER
     Dosage: 10-15MG, QD
     Route: 065
     Dates: start: 2007, end: 2013
  3. ABILIFY [Suspect]
     Active Substance: ARIPIPRAZOLE
     Indication: SUBSTANCE ABUSE
  4. ARIPIPRAZOLE. [Concomitant]
     Active Substance: ARIPIPRAZOLE
     Indication: PRODUCT USED FOR UNKNOWN INDICATION
     Dosage: UNK
     Route: 065
     Dates: end: 20160222
  5. ABILIFY [Suspect]
     Active Substance: ARIPIPRAZOLE
     Indication: ALCOHOL ABUSE

REACTIONS (10)
  - Suicide attempt [Unknown]
  - Product use in unapproved indication [Unknown]
  - Obsessive-compulsive disorder [Not Recovered/Not Resolved]
  - Mental disorder [Unknown]
  - Impulse-control disorder [Unknown]
  - Gambling disorder [Unknown]
  - Sexual dysfunction [Unknown]
  - Compulsive sexual behaviour [Unknown]
  - Suicidal ideation [Unknown]
  - Economic problem [Unknown]

NARRATIVE: CASE EVENT DATE: 2007
